FAERS Safety Report 23175737 (Version 2)
Quarter: 2023Q4

REPORT INFORMATION
  Report Type: Spontaneous
  Country: IT (occurrence: IT)
  Receive Date: 20231113
  Receipt Date: 20231201
  Transmission Date: 20240110
  Serious: Yes (Other)
  Sender: FDA-Public Use
  Company Number: IT-BIOVITRUM-2023-IT-017921

PATIENT
  Age: 82 Year
  Sex: Female

DRUGS (4)
  1. DOPTELET [Suspect]
     Active Substance: AVATROMBOPAG MALEATE
     Indication: Immune thrombocytopenia
     Dosage: 20MG/DAY
     Dates: start: 20230221, end: 20230929
  2. DOPTELET [Suspect]
     Active Substance: AVATROMBOPAG MALEATE
     Dosage: 40MG/DAY
     Dates: start: 20230802, end: 20230929
  3. FUROSEMIDE [Concomitant]
     Active Substance: FUROSEMIDE
     Indication: Product used for unknown indication
  4. RAMIPRIL [Concomitant]
     Active Substance: RAMIPRIL
     Indication: Product used for unknown indication

REACTIONS (7)
  - Erythroid dysplasia [Not Recovered/Not Resolved]
  - Thrombocytosis [Recovered/Resolved]
  - Haemorrhagic disorder [Recovered/Resolved]
  - Platelet count abnormal [Unknown]
  - Purpura [Recovered/Resolved]
  - Petechiae [Recovered/Resolved]
  - Loss of therapeutic response [Unknown]

NARRATIVE: CASE EVENT DATE: 20230316
